FAERS Safety Report 24901461 (Version 1)
Quarter: 2025Q1

REPORT INFORMATION
  Report Type: Spontaneous
  Country: JP (occurrence: JP)
  Receive Date: 20250129
  Receipt Date: 20250129
  Transmission Date: 20250409
  Serious: Yes (Other)
  Sender: TAKEDA
  Company Number: JP-TAKEDA-2024TJP016123

PATIENT
  Age: 5 Decade
  Sex: Male

DRUGS (1)
  1. ALUNBRIG [Suspect]
     Active Substance: BRIGATINIB
     Indication: Lung neoplasm malignant

REACTIONS (5)
  - Metastases to heart [Not Recovered/Not Resolved]
  - Lung neoplasm malignant [Unknown]
  - Tongue discolouration [Recovered/Resolved]
  - Lung opacity [Unknown]
  - Abdominal pain upper [Unknown]

NARRATIVE: CASE EVENT DATE: 20241108
